FAERS Safety Report 12413445 (Version 1)
Quarter: 2016Q2

REPORT INFORMATION
  Report Type: Spontaneous
  Country: FR (occurrence: FR)
  Receive Date: 20160527
  Receipt Date: 20160527
  Transmission Date: 20160815
  Serious: Yes (Hospitalization)
  Sender: FDA-Public Use
  Company Number: FR-ASTRAZENECA-2016SE56180

PATIENT
  Age: 22326 Day
  Sex: Male

DRUGS (12)
  1. OXYCODONE [Suspect]
     Active Substance: OXYCODONE
     Dosage: 10 MG TWICE A DAY
     Route: 048
     Dates: start: 20160428
  2. OXALIPLATINE [Suspect]
     Active Substance: OXALIPLATIN
     Indication: RECTAL ADENOCARCINOMA
     Dosage: HOSPIRA UNKNOWN DOSE
     Route: 042
     Dates: start: 20160420, end: 20160420
  3. SERESTA [Suspect]
     Active Substance: OXAZEPAM
     Indication: ANXIETY
     Dosage: 200 MG TWICE A DAY
     Route: 048
     Dates: start: 20160424
  4. FLUOROURACILE [Suspect]
     Active Substance: FLUOROURACIL
     Indication: RECTAL ADENOCARCINOMA
     Dosage: ACCORD;UNKNOWN DOSE
     Route: 042
     Dates: start: 20160420, end: 20160421
  5. CIPROFLOXACINE [Suspect]
     Active Substance: CIPROFLOXACIN
     Indication: COLITIS
     Dosage: 500 MG TWICE A DAY MYLAN
     Route: 048
     Dates: start: 20160428
  6. INEXIUM [Suspect]
     Active Substance: ESOMEPRAZOLE
     Route: 048
     Dates: start: 20160424
  7. LOVENOX [Suspect]
     Active Substance: ENOXAPARIN SODIUM
     Indication: THROMBOSIS PROPHYLAXIS
     Route: 058
     Dates: start: 20160423
  8. GABAPENTINE [Suspect]
     Active Substance: GABAPENTIN
     Dosage: 300 MG THREE TIMES A DAY;ARROW
     Route: 048
     Dates: start: 20160423
  9. FLAGYL [Suspect]
     Active Substance: METRONIDAZOLE\METRONIDAZOLE HYDROCHLORIDE
     Indication: COLITIS
     Dosage: 500 MG TWICE A DAY
     Route: 048
     Dates: start: 20160428
  10. AUGMENTIN [Suspect]
     Active Substance: AMOXICILLIN\CLAVULANATE POTASSIUM
     Indication: COLITIS
     Route: 042
     Dates: start: 20160423, end: 20160428
  11. PAROXETINE. [Suspect]
     Active Substance: PAROXETINE
     Indication: DEPRESSION
     Dosage: ARROW 20MG UNKNOWN
     Route: 048
     Dates: start: 20160423
  12. FOLINIC ACID [Suspect]
     Active Substance: LEUCOVORIN
     Indication: RECTAL ADENOCARCINOMA
     Route: 042
     Dates: start: 20160420, end: 20160421

REACTIONS (1)
  - Cholestasis [Not Recovered/Not Resolved]

NARRATIVE: CASE EVENT DATE: 20160430
